FAERS Safety Report 22879541 (Version 3)
Quarter: 2023Q4

REPORT INFORMATION
  Report Type: Spontaneous
  Country: JP (occurrence: JP)
  Receive Date: 20230829
  Receipt Date: 20231016
  Transmission Date: 20240110
  Serious: Yes (Hospitalization)
  Sender: FDA-Public Use
  Company Number: JP-GSKNCCC-Case-01774157_AE-73409

PATIENT

DRUGS (5)
  1. ATOVAQUONE [Suspect]
     Active Substance: ATOVAQUONE
     Indication: Pneumocystis jirovecii pneumonia
     Dosage: 5 ML, BID, AFTER BREAKFAST AND DINNER
     Route: 048
     Dates: start: 20230525, end: 20230530
  2. ATOVAQUONE [Suspect]
     Active Substance: ATOVAQUONE
     Indication: Antifungal prophylaxis
     Dosage: 5 ML, BID, AFTER BREAKFAST AND DINNER
     Route: 048
     Dates: start: 20230608, end: 20230628
  3. ATOVAQUONE [Suspect]
     Active Substance: ATOVAQUONE
     Dosage: 10 ML, 1D, AT BREAKFAST
     Route: 048
     Dates: start: 20230629, end: 20230718
  4. KEYTRUDA [Suspect]
     Active Substance: PEMBROLIZUMAB
     Indication: Lung neoplasm malignant
     Dosage: 200 MG
     Route: 041
     Dates: start: 20200811, end: 20230314
  5. BENAMBAX (PENTAMIDINE ISETHIONATE) [Concomitant]
     Indication: Pneumocystis jirovecii pneumonia
     Dosage: 200 MG, 1D
     Dates: start: 20230531, end: 20230606

REACTIONS (2)
  - Liver disorder [Recovered/Resolved]
  - Infection [Recovering/Resolving]

NARRATIVE: CASE EVENT DATE: 20230718
